FAERS Safety Report 10131025 (Version 2)
Quarter: 2014Q2

REPORT INFORMATION
  Report Type: Spontaneous
  Country: US (occurrence: US)
  Receive Date: 20140428
  Receipt Date: 20140604
  Transmission Date: 20141212
  Serious: Yes (Disabling, Other)
  Sender: FDA-Public Use
  Company Number: US-SA-2014SA051796

PATIENT
  Age: 52 Year
  Sex: Male
  Weight: 200 kg

DRUGS (2)
  1. LANTUS SOLOSTAR [Suspect]
     Indication: DIABETES MELLITUS
     Dosage: DOSE:30 UNIT(S)
     Route: 058
  2. SOLOSTAR [Concomitant]
     Indication: DEVICE THERAPY

REACTIONS (2)
  - Impaired work ability [Unknown]
  - Foot amputation [Unknown]
